FAERS Safety Report 9868362 (Version 2)
Quarter: 2014Q2

REPORT INFORMATION
  Report Type: Report from Study
  Country: VE (occurrence: VE)
  Receive Date: 20140204
  Receipt Date: 20140415
  Transmission Date: 20141212
  Serious: Yes (Hospitalization)
  Sender: FDA-Public Use
  Company Number: PHHY2014VE012258

PATIENT
  Age: 62 Year
  Sex: Female

DRUGS (2)
  1. FEMARA [Suspect]
     Indication: BREAST CANCER
     Dosage: 2.5 MG, DAILY
     Route: 048
     Dates: start: 20130426
  2. JANUMET [Concomitant]
     Indication: DIABETES MELLITUS
     Dosage: 1 DF, DAILY
     Route: 048
     Dates: start: 20140305

REACTIONS (2)
  - Wound infection [Recovered/Resolved]
  - Metastases to lymph nodes [Recovered/Resolved]
